FAERS Safety Report 20733846 (Version 3)
Quarter: 2022Q2

REPORT INFORMATION
  Report Type: Report from Study
  Country: ES (occurrence: None)
  Receive Date: 20220421
  Receipt Date: 20220517
  Transmission Date: 20220720
  Serious: Yes (Hospitalization)
  Sender: FDA-Public Use
  Company Number: ES-ROCHE-3077526

PATIENT
  Age: 58 Year
  Sex: Male
  Weight: 64.4 kg

DRUGS (6)
  1. ATEZOLIZUMAB [Suspect]
     Active Substance: ATEZOLIZUMAB
     Indication: Anaplastic thyroid cancer
     Dosage: ON 22/MAR/2022,APTIENT RECEIVED MOST RECENT DOSE OF STUDY DRUG.
     Route: 065
     Dates: start: 20220301, end: 20220412
  2. CABOMETYX [Suspect]
     Active Substance: CABOZANTINIB S-MALATE
     Indication: Neoplasm progression
     Dosage: ON 22/MAR/2022, PATIENT RECEIVED MOST RECENT DOSE OF STUDY DRUG.
     Route: 065
     Dates: start: 20220301, end: 20220412
  3. CALCITRIOL [Concomitant]
     Active Substance: CALCITRIOL
     Route: 048
  4. LEVOTHYROXINE [Concomitant]
     Active Substance: LEVOTHYROXINE
     Indication: Hypothyroidism
     Route: 048
  5. CALCIUM [Concomitant]
     Active Substance: CALCIUM
     Route: 048
  6. ACETAMINOPHEN [Concomitant]
     Active Substance: ACETAMINOPHEN
     Indication: Pain
     Route: 048

REACTIONS (1)
  - Hypertransaminasaemia [Recovered/Resolved]

NARRATIVE: CASE EVENT DATE: 20220412
